FAERS Safety Report 24278369 (Version 1)
Quarter: 2024Q3

REPORT INFORMATION
  Report Type: Spontaneous
  Country: US (occurrence: None)
  Receive Date: 20240830
  Receipt Date: 20240830
  Transmission Date: 20241016
  Serious: Yes (Death)
  Sender: Public
  Company Number: None

PATIENT
  Age: 67 Year
  Sex: Female

DRUGS (1)
  1. MATULANE [Suspect]
     Active Substance: PROCARBAZINE HYDROCHLORIDE
     Dosage: 4 DF DOSAGE FORM 4 TIMES A DAY ORAL
     Route: 048
     Dates: start: 20240814, end: 20240829

REACTIONS (1)
  - Death [None]

NARRATIVE: CASE EVENT DATE: 20240829
